FAERS Safety Report 9476527 (Version 1)
Quarter: 2013Q3

REPORT INFORMATION
  Report Type: Spontaneous
  Country: US (occurrence: None)
  Receive Date: 20130823
  Receipt Date: 20130823
  Transmission Date: 20140515
  Serious: Yes (Other)
  Sender: FDA-Public Use
  Company Number: None

PATIENT
  Age: 60 Year
  Sex: Male
  Weight: 72.3 kg

DRUGS (1)
  1. PEGASYS 180MCG GENENTECH [Suspect]
     Indication: HEPATITIS C
     Dosage: ONCE WEEKLY
     Route: 058
     Dates: start: 20130621, end: 20130726

REACTIONS (1)
  - Retinal detachment [None]
